FAERS Safety Report 4720861-6 (Version None)
Quarter: 2005Q3

REPORT INFORMATION
  Report Type: 
  Country: None (occurrence: None)
  Receive Date: 20050720
  Receipt Date: 20050707
  Transmission Date: 20060218
  Serious: Yes (Death, Hospitalization, Other)
  Sender: FDA-Public Use
  Company Number: 2005097898

PATIENT
  Age: 74 Year
  Sex: Female

DRUGS (10)
  1. FRAGMIN [Suspect]
     Indication: ILL-DEFINED DISORDER
     Dosage: SUBCUTANEOUS
     Route: 058
     Dates: start: 20050331, end: 20050405
  2. ACETYLSALICYLIC ACID SRT [Suspect]
     Indication: ILL-DEFINED DISORDER
     Dates: start: 20050331
  3. LASIX RETARD (FUROSEMIDE) [Concomitant]
  4. SELOKEN ZOC (METOPROLOL SUCCINATE) [Concomitant]
  5. STILNOCT (ZOLPIDEM TARTRATE) [Concomitant]
  6. TIOTROPIUM (TIOTROPIUM) [Concomitant]
  7. SERETIDE DISKUS (FLUTICASONE PROPIONATE, SALMETEROL XINAFOATE) [Concomitant]
  8. ENALAPRIL MALEATE [Concomitant]
  9. AMARYL [Concomitant]
  10. FUROSEMIDE [Concomitant]

REACTIONS (6)
  - ABDOMINAL HAEMATOMA [None]
  - BLOOD PRESSURE SYSTOLIC DECREASED [None]
  - COUGH [None]
  - DYSPNOEA [None]
  - HAEMORRHAGE [None]
  - PAIN [None]
